FAERS Safety Report 16952757 (Version 1)
Quarter: 2019Q4

REPORT INFORMATION
  Report Type: Spontaneous
  Country: US (occurrence: US)
  Receive Date: 20190904
  Receipt Date: 20190904
  Transmission Date: 20200122
  Serious: Yes (Hospitalization)
  Sender: FDA-Public Use
  Company Number: None

PATIENT
  Age: 38 Year
  Sex: Female

DRUGS (1)
  1. OPSUMIT [Suspect]
     Active Substance: MACITENTAN
     Route: 048
     Dates: start: 20190607

REACTIONS (4)
  - Chest discomfort [None]
  - Hypoxia [None]
  - Presyncope [None]
  - Condition aggravated [None]

NARRATIVE: CASE EVENT DATE: 20190815
